FAERS Safety Report 21183578 (Version 1)
Quarter: 2022Q3

REPORT INFORMATION
  Report Type: Spontaneous
  Country: GB (occurrence: GB)
  Receive Date: 20220808
  Receipt Date: 20220808
  Transmission Date: 20221027
  Serious: Yes (Other)
  Sender: FDA-Public Use
  Company Number: None

PATIENT
  Age: 51 Year
  Sex: Female
  Weight: 93 kg

DRUGS (20)
  1. CEPHALEXIN [Suspect]
     Active Substance: CEPHALEXIN
     Indication: Product used for unknown indication
     Dosage: 250 MILLIGRAM, TAKE ONE DAILY
     Route: 065
     Dates: start: 20211222
  2. AMOXICILLIN [Concomitant]
     Active Substance: AMOXICILLIN
     Indication: Product used for unknown indication
     Dosage: 3 (DF), TAKE ONE CAPSULE THREE TIMES A DAY FOR INFECTION
     Route: 065
     Dates: start: 20220426, end: 20220503
  3. CLOPIDOGREL [Concomitant]
     Active Substance: CLOPIDOGREL BISULFATE
     Indication: Product used for unknown indication
     Dosage: 1 (DF), TAKE ONE ONCE DAILY
     Route: 065
     Dates: start: 20211222
  4. COCODAMOL [Concomitant]
     Active Substance: ACETAMINOPHEN\CODEINE PHOSPHATE
     Indication: Product used for unknown indication
     Dosage: 4. TAKE ONE OR TWO TABLETS, FOUR TIMES DAILY IF NEED
     Route: 048
     Dates: start: 20220211, end: 20220622
  5. DOCUSATE SODIUM [Concomitant]
     Active Substance: DOCUSATE SODIUM
     Dosage: 4 (DF), TAKE ONE 4 TIMES/DAY
     Route: 065
     Dates: start: 20220622, end: 20220702
  6. DULOXETINE [Concomitant]
     Active Substance: DULOXETINE
     Indication: Product used for unknown indication
     Dosage: 1 (DF), ONE TABLET DAILY
     Route: 048
     Dates: start: 20211222
  7. ESOMEPRAZOLE [Concomitant]
     Active Substance: ESOMEPRAZOLE
     Indication: Product used for unknown indication
     Dosage: 1 (DF), TAKE ONE DAILY
     Route: 065
     Dates: start: 20211222
  8. FERROUS FUMARATE [Concomitant]
     Active Substance: FERROUS FUMARATE
     Indication: Product used for unknown indication
     Dosage: 3 (DF), ONE TABLET THREE TIMES PER DAY
     Route: 048
     Dates: start: 20211222
  9. GLYCERIN [Concomitant]
     Active Substance: GLYCERIN
     Indication: Product used for unknown indication
     Dosage: INSERT ONE AS NEEDED
     Route: 065
     Dates: start: 20220622, end: 20220721
  10. NITROGLYCERIN [Concomitant]
     Active Substance: NITROGLYCERIN
     Indication: Product used for unknown indication
     Dosage: 1 (DF), SPRAY ONE PUFF UNDER THE TONGUE WHEN REQUIRED
     Route: 065
     Dates: start: 20211222
  11. LOSARTAN [Concomitant]
     Active Substance: LOSARTAN
     Indication: Product used for unknown indication
     Dosage: 1 (DF), TAKE ONE DAILY IN THE MORNING
     Route: 048
     Dates: start: 20211222
  12. MOMETASONE [Concomitant]
     Active Substance: MOMETASONE
     Indication: Product used for unknown indication
     Dosage: 2 (DF), SPRAY TWO PUFFS INTO EACH NOSTRIL ONCE DAILY
     Route: 065
     Dates: start: 20220606
  13. NITROFURANTOIN [Concomitant]
     Active Substance: NITROFURANTOIN
     Indication: Product used for unknown indication
     Dosage: 2 (DF), TAKE ONE CAPSULE TWICE DAILY FOR THREE DAYS
     Route: 065
     Dates: start: 20220720
  14. PROMETHAZINE HYDROCHLORIDE [Concomitant]
     Active Substance: PROMETHAZINE HYDROCHLORIDE
     Indication: Product used for unknown indication
     Dosage: 10 MILLIGRAM, TWO, THREE TIMES A DAY IF NEEDED
     Route: 065
     Dates: start: 20220720
  15. SIMVASTATIN [Concomitant]
     Active Substance: SIMVASTATIN
     Indication: Product used for unknown indication
     Dosage: 1 (DF),TAKE ONE AT NIGHT
     Route: 065
     Dates: start: 20211222
  16. SOLIFENACIN [Concomitant]
     Active Substance: SOLIFENACIN
     Indication: Product used for unknown indication
     Dosage: 1 (DF), TAKE ONE DAILY
     Route: 065
     Dates: start: 20211222
  17. BENZALKONIUM CHLORIDE\DIMETHICONE\HYDROCORTISONE\NYSTATIN [Concomitant]
     Active Substance: BENZALKONIUM CHLORIDE\DIMETHICONE\HYDROCORTISONE\NYSTATIN
     Indication: Product used for unknown indication
     Dosage: 3 MILLIGRAM, APPLY 3 TIMES PER DAY
     Route: 065
     Dates: start: 20220720
  18. VENTOLIN [Concomitant]
     Active Substance: ALBUTEROL SULFATE
     Indication: Product used for unknown indication
     Dosage: 2 (DF), INHALE 2 DOSES AS NEEDED
     Route: 065
     Dates: start: 20211222
  19. VERAPAMIL HYDROCHLORIDE [Concomitant]
     Active Substance: VERAPAMIL HYDROCHLORIDE
     Indication: Product used for unknown indication
     Dosage: 1 (DF), TAKE ONE TABLET DAILY (IN COMBINATION WITH 120MG TABLET TO MAKE TOTAL DOSE OF 200MG)
     Route: 048
     Dates: start: 20211222
  20. ZOPICLONE [Concomitant]
     Active Substance: ZOPICLONE
     Indication: Product used for unknown indication
     Dosage: 1 (DF), TAKE ONE TABLET AT NIGHT WHEN REQUIRED TO HELP
     Route: 048
     Dates: start: 20220704, end: 20220711

REACTIONS (1)
  - Malaise [Recovered/Resolved]

NARRATIVE: CASE EVENT DATE: 20220721
